FAERS Safety Report 8501162-7 (Version None)
Quarter: 2012Q3

REPORT INFORMATION
  Report Type: 
  Country: None (occurrence: None)
  Receive Date: 20120710
  Receipt Date: 20120629
  Transmission Date: 20120928
  Serious: Yes (Death)
  Sender: FDA-Public Use
  Company Number: US-ACTELION-A-US2012-67042

PATIENT

DRUGS (4)
  1. TRACLEER [Suspect]
     Indication: PULMONARY ARTERIAL HYPERTENSION
     Dosage: UNK
     Route: 048
     Dates: start: 20020501, end: 20120501
  2. CALCIUM CHANNEL BLOCKERS [Concomitant]
  3. OXYGEN [Concomitant]
  4. COUMADIN [Concomitant]

REACTIONS (1)
  - PULMONARY HYPERTENSION [None]
